FAERS Safety Report 22526462 (Version 1)
Quarter: 2023Q2

REPORT INFORMATION
  Report Type: Spontaneous
  Country: US (occurrence: None)
  Receive Date: 20230606
  Receipt Date: 20230606
  Transmission Date: 20230721
  Serious: Yes (Other)
  Sender: FDA-Public Use
  Company Number: 2023A125506

PATIENT

DRUGS (1)
  1. OMEPRAZOLE [Suspect]
     Active Substance: OMEPRAZOLE
     Route: 048

REACTIONS (6)
  - Chronic kidney disease [Unknown]
  - Gallbladder disorder [Unknown]
  - Immunoglobulins abnormal [Unknown]
  - CD19 lymphocyte count abnormal [Unknown]
  - Gastric disorder [Unknown]
  - Impaired gastric emptying [Unknown]
